FAERS Safety Report 17037066 (Version 2)
Quarter: 2019Q4

REPORT INFORMATION
  Report Type: Report from Study
  Country: None (occurrence: CO)
  Receive Date: 20191115
  Receipt Date: 20191206
  Transmission Date: 20200122
  Serious: Yes (Hospitalization, Other)
  Sender: FDA-Public Use
  Company Number: CO-ABBVIE-19K-036-3001601-00

PATIENT
  Sex: Female

DRUGS (2)
  1. HUMIRA [Suspect]
     Active Substance: ADALIMUMAB
     Indication: RHEUMATOID ARTHRITIS
     Route: 058
     Dates: start: 20090630
  2. HUMIRA [Suspect]
     Active Substance: ADALIMUMAB
     Indication: RHEUMATOID ARTHRITIS
     Route: 058
     Dates: end: 20190930

REACTIONS (13)
  - Swelling [Recovered/Resolved]
  - Pain in extremity [Unknown]
  - Osteoarthritis [Recovering/Resolving]
  - Dermatitis contact [Recovered/Resolved]
  - Skin injury [Recovered/Resolved]
  - Herpes virus infection [Recovered/Resolved]
  - Skin discolouration [Recovered/Resolved]
  - Device allergy [Recovered/Resolved]
  - Skin burning sensation [Recovered/Resolved]
  - Tuberculosis [Recovered/Resolved]
  - Pain in extremity [Recovered/Resolved]
  - Inflammation [Unknown]
  - Oedema [Recovering/Resolving]

NARRATIVE: CASE EVENT DATE: 2012
